FAERS Safety Report 4742854-5 (Version None)
Quarter: 2005Q3

REPORT INFORMATION
  Report Type: 
  Country: None (occurrence: None)
  Receive Date: 20050811
  Receipt Date: 20050805
  Transmission Date: 20060218
  Serious: Yes (Hospitalization)
  Sender: FDA-Public Use
  Company Number: PHBS2005PL11455

PATIENT
  Age: 38 Year
  Sex: Male
  Weight: 70 kg

DRUGS (12)
  1. CYCLOSPORINE [Suspect]
     Indication: RENAL TRANSPLANT
     Dosage: 500 MG/D
  2. CYCLOSPORINE [Suspect]
     Dosage: 350 MG/D
  3. AZATHIOPRINE [Suspect]
     Indication: RENAL TRANSPLANT
     Dosage: 200 MG/D
  4. AZATHIOPRINE [Suspect]
     Dosage: 150 MG/D
  5. AZATHIOPRINE [Suspect]
     Dosage: 50 MG/D
  6. AZATHIOPRINE [Suspect]
     Dosage: 75 MG/D
  7. PREDNISONE [Concomitant]
     Dosage: 45 MG/D
  8. PREDNISONE [Concomitant]
     Dosage: 20 MG/D
  9. VERAPAMIL HYDROCHLORIDE [Concomitant]
     Dosage: 240 MG/D
  10. ASPIRIN [Concomitant]
     Dosage: 500 MG/D
  11. CO-TRIMOXAZOLE [Concomitant]
     Dosage: 480 MG/D
  12. CEFUROXIME SODIUM [Concomitant]
     Dosage: 1.5 G/D

REACTIONS (5)
  - BONE MARROW DEPRESSION [None]
  - RED BLOOD CELL COUNT DECREASED [None]
  - RENAL FAILURE [None]
  - URETERIC STENOSIS [None]
  - WHITE BLOOD CELL COUNT DECREASED [None]
